FAERS Safety Report 16618779 (Version 1)
Quarter: 2019Q3

REPORT INFORMATION
  Report Type: Spontaneous
  Country: US (occurrence: US)
  Receive Date: 20190723
  Receipt Date: 20190723
  Transmission Date: 20191004
  Serious: No
  Sender: FDA-Public Use
  Company Number: US-GLAXOSMITHKLINE-US2019131819

PATIENT
  Age: 3 Year
  Sex: Female

DRUGS (2)
  1. VASELINE CREAM CREAM (WHITE SOFT PARAFFIN) [Suspect]
     Active Substance: PARAFFIN
     Indication: PRODUCT USED FOR UNKNOWN INDICATION
     Dosage: UNK
  2. FLONASE ALLERGY RELIEF [Suspect]
     Active Substance: FLUTICASONE PROPIONATE
     Indication: HYPERSENSITIVITY
     Dosage: I GAVE HER 2 MISTS IN ONE NOSTRIL

REACTIONS (3)
  - Product use issue [Unknown]
  - Off label use [Unknown]
  - Extra dose administered [Unknown]
